FAERS Safety Report 25139303 (Version 2)
Quarter: 2025Q2

REPORT INFORMATION
  Report Type: Spontaneous
  Country: JP (occurrence: JP)
  Receive Date: 20250331
  Receipt Date: 20250403
  Transmission Date: 20250716
  Serious: Yes (Other)
  Sender: ASTELLAS
  Company Number: JP-ASTELLAS-2025-AER-016286

PATIENT
  Age: 10 Decade
  Sex: Male

DRUGS (2)
  1. PADCEV [Suspect]
     Active Substance: ENFORTUMAB VEDOTIN-EJFV
     Indication: Bladder cancer
     Route: 042
     Dates: start: 20250326
  2. PADCEV [Suspect]
     Active Substance: ENFORTUMAB VEDOTIN-EJFV
     Route: 042
     Dates: start: 20250212, end: 20250228

REACTIONS (7)
  - Pigmentation disorder [Not Recovered/Not Resolved]
  - Blister [Recovered/Resolved]
  - Myelosuppression [Recovered/Resolved]
  - Skin exfoliation [Not Recovered/Not Resolved]
  - Mucosal disorder [Recovered/Resolved]
  - Stevens-Johnson syndrome [Unknown]
  - Eosinophil count increased [Unknown]

NARRATIVE: CASE EVENT DATE: 20250313
